FAERS Safety Report 8184729-8 (Version None)
Quarter: 2012Q1

REPORT INFORMATION
  Report Type: 
  Country: None (occurrence: None)
  Receive Date: 20120305
  Receipt Date: 20120305
  Transmission Date: 20120608
  Serious: Yes (Life-Threatening)
  Sender: FDA-Public Use
  Company Number: None

PATIENT
  Age: 65 Year
  Sex: Female
  Weight: 58.059 kg

DRUGS (1)
  1. RECLAST [Suspect]
     Indication: OSTEOPENIA
     Dosage: UNKNOWN
     Dates: start: 20120222, end: 20120222

REACTIONS (19)
  - ARTHRALGIA [None]
  - BLOOD CHLORIDE DECREASED [None]
  - SYNCOPE [None]
  - MYALGIA [None]
  - PAIN [None]
  - CONCUSSION [None]
  - STARING [None]
  - FALL [None]
  - BLOOD SODIUM DECREASED [None]
  - BLOOD ELECTROLYTES ABNORMAL [None]
  - MUSCULOSKELETAL STIFFNESS [None]
  - DIZZINESS [None]
  - PAIN IN EXTREMITY [None]
  - HEAD INJURY [None]
  - BLOOD PRESSURE DECREASED [None]
  - NO THERAPEUTIC RESPONSE [None]
  - HEADACHE [None]
  - FEELING ABNORMAL [None]
  - BONE PAIN [None]
